FAERS Safety Report 22066294 (Version 1)
Quarter: 2023Q1

REPORT INFORMATION
  Report Type: Spontaneous
  Country: US (occurrence: None)
  Receive Date: 20230306
  Receipt Date: 20230306
  Transmission Date: 20230417
  Serious: Yes (Disabling, Other)
  Sender: FDA-Public Use
  Company Number: None

PATIENT
  Age: 39 Year
  Sex: Female
  Weight: 56.25 kg

DRUGS (8)
  1. LEVAQUIN [Suspect]
     Active Substance: LEVOFLOXACIN
     Indication: Pneumonia bacterial
     Dosage: OTHER QUANTITY : 1 TABLET(S);?OTHER FREQUENCY : ONE TIME DOSE;?
     Route: 048
     Dates: start: 20230224, end: 20230225
  2. EFFEXOR [Concomitant]
  3. CLONAZEPAM [Concomitant]
  4. WELLBUTRIN [Concomitant]
  5. BUSPIRONE [Concomitant]
  6. trazedone [Concomitant]
  7. LYRICA [Concomitant]
     Active Substance: PREGABALIN
  8. EXCEDRIN EXTRA STRENGTH [Concomitant]
     Active Substance: ACETAMINOPHEN\ASPIRIN\CAFFEINE

REACTIONS (8)
  - Insomnia [None]
  - Palpitations [None]
  - Hallucinations, mixed [None]
  - Tachyphrenia [None]
  - Psychotic disorder [None]
  - Fear of death [None]
  - Disturbance in attention [None]
  - Sensory disturbance [None]

NARRATIVE: CASE EVENT DATE: 20230224
